FAERS Safety Report 21762757 (Version 11)
Quarter: 2023Q2

REPORT INFORMATION
  Report Type: Spontaneous
  Country: PL (occurrence: PL)
  Receive Date: 20221221
  Receipt Date: 20230427
  Transmission Date: 20230722
  Serious: Yes (Other)
  Sender: FDA-Public Use
  Company Number: PL-MYLANLABS-2022M1143853

PATIENT
  Age: 41 Year
  Sex: Male

DRUGS (18)
  1. QUETIAPINE [Interacting]
     Active Substance: QUETIAPINE
     Indication: Anxiety
     Dosage: 100 MILLIGRAM, QD
     Route: 048
  2. QUETIAPINE [Interacting]
     Active Substance: QUETIAPINE
     Indication: Sleep disorder
  3. QUETIAPINE [Interacting]
     Active Substance: QUETIAPINE
     Indication: Insomnia
  4. ATORVASTATIN [Interacting]
     Active Substance: ATORVASTATIN
     Indication: Dyslipidaemia
     Dosage: 40 MILLIGRAM, DAILY QD
     Route: 048
  5. TRAMADOL [Interacting]
     Active Substance: TRAMADOL
     Indication: Visceral pain
     Dosage: 200 MG, QD FIRST 200 MG/DAY THEN 300 MG/DAY
     Route: 048
  6. TRAMADOL [Interacting]
     Active Substance: TRAMADOL
     Indication: Pancreatitis
     Dosage: 300 MILLIGRAM, QD
     Route: 048
  7. TRAMADOL [Interacting]
     Active Substance: TRAMADOL
     Indication: Pancreatitis chronic
  8. OMEPRAZOLE [Interacting]
     Active Substance: OMEPRAZOLE
     Indication: Visceral pain
     Dosage: 40 MILLIGRAM, QD
     Route: 048
  9. OMEPRAZOLE [Interacting]
     Active Substance: OMEPRAZOLE
     Indication: Pancreatitis chronic
  10. OMEPRAZOLE [Interacting]
     Active Substance: OMEPRAZOLE
     Indication: Abdominal pain upper
  11. IBUPROFEN [Interacting]
     Active Substance: IBUPROFEN
     Indication: Visceral pain
     Dosage: 1800 MILLIGRAM, QD
     Route: 048
  12. IBUPROFEN [Interacting]
     Active Substance: IBUPROFEN
     Indication: Pancreatitis
     Dosage: 1800 MILLIGRAM, QD
     Route: 048
  13. IBUPROFEN [Interacting]
     Active Substance: IBUPROFEN
     Indication: Pancreatitis chronic
  14. BUPRENORPHINE [Concomitant]
     Active Substance: BUPRENORPHINE
     Indication: Visceral pain
     Dosage: 17.5 MCG, QH (PATCH APPLIED EVERY 72 HOURS)
     Route: 065
  15. METAMIZOLE [Concomitant]
     Active Substance: METAMIZOLE
     Indication: Visceral pain
     Dosage: 1000 MG(UP TO A MAXIMUM DOSE OF 5000 MG/D)
     Route: 065
  16. PREGABALIN [Concomitant]
     Active Substance: PREGABALIN
     Indication: Anxiety
     Dosage: 75 MG, QD, PM, USED OVERNIGHT
     Route: 065
  17. PREGABALIN [Concomitant]
     Active Substance: PREGABALIN
     Indication: Sleep disorder
  18. PITAVASTATIN [Concomitant]
     Active Substance: PITAVASTATIN
     Dosage: UNK
     Route: 065

REACTIONS (19)
  - Seizure [Recovered/Resolved]
  - Pain [Recovered/Resolved]
  - Drug interaction [Recovered/Resolved]
  - Sleep disorder [Recovered/Resolved]
  - Inadequate analgesia [Recovered/Resolved]
  - Anxiety [Recovered/Resolved]
  - Fear [Recovering/Resolving]
  - Insomnia [Recovering/Resolving]
  - Abdominal pain upper [Recovered/Resolved]
  - Poor quality sleep [Recovering/Resolving]
  - Visceral pain [Recovering/Resolving]
  - Dysbiosis [Unknown]
  - Condition aggravated [Not Recovered/Not Resolved]
  - Drug level increased [Unknown]
  - Drug ineffective [Unknown]
  - Therapeutic product effect decreased [Recovered/Resolved]
  - Product use in unapproved indication [Unknown]
  - Off label use [Unknown]
  - Overdose [Recovered/Resolved]
